FAERS Safety Report 9834770 (Version 1)
Quarter: 2014Q1

REPORT INFORMATION
  Report Type: Spontaneous
  Country: US (occurrence: US)
  Receive Date: 20140122
  Receipt Date: 20140122
  Transmission Date: 20141002
  Serious: No
  Sender: FDA-Public Use
  Company Number: US-BAXTER-2014BAX002252

PATIENT
  Sex: 0

DRUGS (1)
  1. 0.25% ACETIC ACID IRRIGATION, USP IN PLASTIC POUR BOTTLES [Suspect]
     Indication: PRODUCT USED FOR UNKNOWN INDICATION
     Route: 055

REACTIONS (2)
  - Product label confusion [Unknown]
  - Wrong drug administered [Unknown]
